FAERS Safety Report 9415575 (Version 2)
Quarter: 2013Q3

REPORT INFORMATION
  Report Type: Spontaneous
  Country: US (occurrence: US)
  Receive Date: 20130723
  Receipt Date: 20130930
  Transmission Date: 20140515
  Serious: Yes (Hospitalization, Other)
  Sender: FDA-Public Use
  Company Number: US-AMGEN-USASP2013051292

PATIENT
  Age: 68 Year
  Sex: Female
  Weight: 68.03 kg

DRUGS (2)
  1. ENBREL [Suspect]
     Indication: RHEUMATOID ARTHRITIS
     Dosage: 50 MG, QWK
     Route: 058
     Dates: start: 20050215, end: 20130801
  2. METHOTREXATE SODIUM [Concomitant]
     Dosage: 2.5 MG, 3 TIMES/WK
     Route: 048
     Dates: start: 20130322, end: 20130720

REACTIONS (8)
  - Chondropathy [Recovered/Resolved]
  - Procedural complication [Recovered/Resolved]
  - Arthropathy [Recovered/Resolved]
  - Weight bearing difficulty [Recovered/Resolved]
  - Lipoma [Recovered/Resolved]
  - Crepitations [Recovered/Resolved]
  - Skin papilloma [Not Recovered/Not Resolved]
  - Hyperhidrosis [Not Recovered/Not Resolved]
